FAERS Safety Report 9433438 (Version 1)
Quarter: 2013Q3

REPORT INFORMATION
  Report Type: Report from Study
  Country: US (occurrence: US)
  Receive Date: 20130731
  Receipt Date: 20130731
  Transmission Date: 20140515
  Serious: Yes (Other)
  Sender: FDA-Public Use
  Company Number: US-ROCHE-790575

PATIENT
  Age: 76 Year
  Sex: Female

DRUGS (3)
  1. BEVACIZUMAB [Suspect]
     Indication: MACULAR DEGENERATION
     Dosage: STRENGTH: 2.5 MG/0.1 ML, FREQUENCY: ONCE. RIGHT EYE
     Route: 050
  2. BEVACIZUMAB [Suspect]
     Indication: OFF LABEL USE
  3. VANCOMYCIN [Concomitant]
     Dosage: 1 MG/0.1 ML
     Route: 050

REACTIONS (4)
  - Endophthalmitis [Recovering/Resolving]
  - Visual impairment [Unknown]
  - Visual acuity reduced [Unknown]
  - Product quality issue [Unknown]
